FAERS Safety Report 4835349-1 (Version None)
Quarter: 2005Q4

REPORT INFORMATION
  Report Type: 
  Country: None (occurrence: None)
  Receive Date: 20051114
  Receipt Date: 20051031
  Transmission Date: 20060501
  Serious: Yes (Death)
  Sender: FDA-Public Use
  Company Number: 2005-US-00266

PATIENT
  Age: 42 Year
  Sex: Male
  Weight: 122.4712 kg

DRUGS (6)
  1. CLOZAPINE [Suspect]
     Indication: SCHIZOPHRENIA
     Dosage: 300 MG QHS, ORAL
     Route: 048
     Dates: start: 20040101, end: 20050701
  2. ARIPIPRAZOLE [Concomitant]
  3. VALPROATE SODIUM [Concomitant]
  4. CLONAZEPAM [Concomitant]
  5. PROPRANOLOL HYDROCHLORIDE [Concomitant]
  6. BENZATROPINE MESIALTE [Concomitant]

REACTIONS (3)
  - LOSS OF CONSCIOUSNESS [None]
  - PAIN IN EXTREMITY [None]
  - PULMONARY THROMBOSIS [None]
